FAERS Safety Report 25604033 (Version 3)
Quarter: 2025Q3

REPORT INFORMATION
  Report Type: Spontaneous
  Country: US (occurrence: US)
  Receive Date: 20250725
  Receipt Date: 20250813
  Transmission Date: 20251020
  Serious: Yes (Hospitalization, Other)
  Sender: NOVO NORDISK
  Company Number: US-NOVOPROD-1483456

PATIENT
  Age: 67 Year
  Sex: Female

DRUGS (1)
  1. NOVOLIN 70/30 [Suspect]
     Active Substance: INSULIN HUMAN
     Indication: Type 2 diabetes mellitus
     Dosage: 25 U, QD (15 IN THE MORNING, 10 IN THE AFTERNOON)
     Route: 058

REACTIONS (7)
  - Lymphoma [Unknown]
  - Lung neoplasm malignant [Recovered/Resolved]
  - Nodule [Recovering/Resolving]
  - Pneumonitis [Unknown]
  - Blood glucose decreased [Recovered/Resolved]
  - Hyperhidrosis [Recovered/Resolved]
  - Vision blurred [Recovered/Resolved]

NARRATIVE: CASE EVENT DATE: 20210101
